FAERS Safety Report 6007438-X (Version None)
Quarter: 2008Q4

REPORT INFORMATION
  Report Type: 
  Country: None (occurrence: None)
  Receive Date: 20081217
  Receipt Date: 20080417
  Transmission Date: 20090506
  Serious: No
  Sender: FDA-Public Use
  Company Number: US-ASTRAZENECA-2008UW07981

PATIENT
  Age: 53 Year
  Sex: Female
  Weight: 108.9 kg

DRUGS (5)
  1. CRESTOR [Suspect]
     Indication: BLOOD CHOLESTEROL INCREASED
     Route: 048
     Dates: start: 20080401
  2. LASIX [Concomitant]
  3. DILTAZIEM [Concomitant]
  4. HYDROCODONE BITARTRATE [Concomitant]
  5. DARVON [Concomitant]
     Indication: MUSCLE RELAXANT THERAPY

REACTIONS (2)
  - NAUSEA [None]
  - PAIN [None]
